FAERS Safety Report 17436787 (Version 1)
Quarter: 2020Q1

REPORT INFORMATION
  Report Type: Spontaneous
  Country: US (occurrence: US)
  Receive Date: 20200219
  Receipt Date: 20200219
  Transmission Date: 20200409
  Serious: No
  Sender: FDA-Public Use
  Company Number: US-SA-2020SA041910

PATIENT
  Sex: Male

DRUGS (2)
  1. HUMULINE (INSULIN HUMAN\INSULIN HUMAN INJECTION, ISOPHANE) [Suspect]
     Active Substance: INSULIN HUMAN
     Route: 065
  2. LANTUS SOLOSTAR [Suspect]
     Active Substance: INSULIN GLARGINE
     Indication: TYPE 2 DIABETES MELLITUS
     Dosage: 40 UNITS OF LANTUS AT BEDTIME IF HIS BLOOD SUGARS ARE OVER 160 AND TO REDUCE BY 5 UNITS IF IT S BELO
     Route: 065

REACTIONS (2)
  - Tremor [Unknown]
  - Blood glucose decreased [Unknown]
